FAERS Safety Report 11302664 (Version 6)
Quarter: 2015Q3

REPORT INFORMATION
  Report Type: Spontaneous
  Country: US (occurrence: US)
  Receive Date: 20150723
  Receipt Date: 20150824
  Transmission Date: 20151125
  Serious: Yes (Death)
  Sender: FDA-Public Use
  Company Number: US-JNJFOC-20150715515

PATIENT
  Age: 58 Year
  Sex: Female

DRUGS (19)
  1. XARELTO [Suspect]
     Active Substance: RIVAROXABAN
     Indication: CEREBROVASCULAR ACCIDENT PROPHYLAXIS
     Route: 048
  2. RESTASIS [Concomitant]
     Active Substance: CYCLOSPORINE
     Dosage: 0.05% EYE DROPS IN A DROPPERETTE TAKE AS DIRECTED
     Route: 065
  3. XARELTO [Suspect]
     Active Substance: RIVAROXABAN
     Indication: ATRIAL FIBRILLATION
     Route: 048
  4. LASIX [Concomitant]
     Active Substance: FUROSEMIDE
     Route: 048
  5. LIPITOR [Concomitant]
     Active Substance: ATORVASTATIN CALCIUM
     Dosage: IN THE EVENING
     Route: 048
  6. PENTOXIFYLLINE. [Concomitant]
     Active Substance: PENTOXIFYLLINE
     Dosage: EXTENDED RELEASE
     Route: 048
  7. LANTUS SOLOSTAR [Concomitant]
     Active Substance: INSULIN GLARGINE
     Dosage: 100 UNITS/ML INSULIN PEN AS DIRECTED
     Route: 065
  8. LEVOTHYROXINE. [Concomitant]
     Active Substance: LEVOTHYROXINE
     Route: 048
  9. METOLAZONE. [Concomitant]
     Active Substance: METOLAZONE
     Route: 048
  10. AMIODARONE [Concomitant]
     Active Substance: AMIODARONE
     Route: 048
  11. METOPROLOL SUCCINATE. [Concomitant]
     Active Substance: METOPROLOL SUCCINATE
     Dosage: EXTENDED RELEASE
     Route: 048
  12. VITAMIN D3 [Concomitant]
     Active Substance: CHOLECALCIFEROL
     Route: 048
  13. CYMBALTA [Concomitant]
     Active Substance: DULOXETINE HYDROCHLORIDE
     Dosage: DELAYED RELEASE (E.C)
     Route: 048
  14. HYDRALAZINE [Concomitant]
     Active Substance: HYDRALAZINE HYDROCHLORIDE
     Route: 048
  15. METFORMIN [Concomitant]
     Active Substance: METFORMIN HYDROCHLORIDE
     Route: 048
  16. POTASSIUM CHLORIDE. [Concomitant]
     Active Substance: POTASSIUM CHLORIDE
     Route: 065
  17. CEFPROZIL. [Concomitant]
     Active Substance: CEFPROZIL
     Route: 048
  18. LOSARTAN. [Concomitant]
     Active Substance: LOSARTAN
     Route: 048
  19. NOVOLOG [Concomitant]
     Active Substance: INSULIN ASPART
     Dosage: NOVOLOG MIX 70-30 FLEXPEN 100 UNIT/ML (70-30) INSULIN OEN TAKES AS DIRECTED
     Route: 065

REACTIONS (1)
  - Cerebral haemorrhage [Fatal]

NARRATIVE: CASE EVENT DATE: 20150710
